FAERS Safety Report 5250738-1 (Version None)
Quarter: 2007Q1

REPORT INFORMATION
  Report Type: 
  Country: None (occurrence: None)
  Receive Date: 20070228
  Receipt Date: 20060707
  Transmission Date: 20070707
  Serious: Yes (Hospitalization)
  Sender: FDA-Public Use
  Company Number: US-GLAXOSMITHKLINE-A0610668A

PATIENT
  Age: 35 Year
  Sex: Female

DRUGS (5)
  1. LAMICTAL [Suspect]
     Indication: BIPOLAR DISORDER
     Dosage: 50MG PER DAY
     Route: 048
     Dates: start: 20060527
  2. ZOLOFT [Concomitant]
  3. LEVOTHYROXINE SODIUM [Concomitant]
  4. ALTACE [Concomitant]
  5. PLAQUENIL [Concomitant]

REACTIONS (4)
  - CHROMATURIA [None]
  - NAUSEA [None]
  - RHABDOMYOLYSIS [None]
  - VOMITING [None]
